FAERS Safety Report 10638796 (Version 3)
Quarter: 2015Q2

REPORT INFORMATION
  Report Type: Report from Study
  Country: US (occurrence: US)
  Receive Date: 20141208
  Receipt Date: 20150430
  Transmission Date: 20150821
  Serious: Yes (Hospitalization, Other)
  Sender: FDA-Public Use
  Company Number: US-GILEAD-2014-0125565

PATIENT
  Age: 67 Year
  Sex: Female

DRUGS (2)
  1. REVATIO [Concomitant]
     Active Substance: SILDENAFIL CITRATE
  2. AMBRISENTAN [Suspect]
     Active Substance: AMBRISENTAN
     Indication: PRODUCT USED FOR UNKNOWN INDICATION
     Dosage: 5 MG, QD
     Route: 065
     Dates: start: 20120829

REACTIONS (7)
  - Fall [Unknown]
  - Nasal congestion [Unknown]
  - Balance disorder [Unknown]
  - Anaemia [Unknown]
  - Blood iron decreased [Unknown]
  - Epistaxis [Unknown]
  - Contusion [Unknown]
